FAERS Safety Report 9160452 (Version 1)
Quarter: 2013Q1

REPORT INFORMATION
  Report Type: Spontaneous
  Country: FR (occurrence: None)
  Receive Date: 20130215
  Receipt Date: 20130215
  Transmission Date: 20140127
  Serious: Yes (Hospitalization)
  Sender: FDA-Public Use
  Company Number: DSM-2013-00209

PATIENT
  Age: 70 Year
  Sex: Female

DRUGS (8)
  1. COOLMETEC [Suspect]
     Dosage: 20/12.5 (1 IN 1 D)
     Route: 048
  2. IXPRIM [Suspect]
     Dates: start: 20110425, end: 201104
  3. TRAMADOL HYDROCHLORIDE [Suspect]
     Dates: start: 201104, end: 20110502
  4. CORGARD (NADOLOL) (NADOLOL) [Concomitant]
  5. IPERTEN (MANIDIPINE HYDROCHLORIDE) (MANIDIPINE HYDROCHLORIDE) [Concomitant]
  6. KARDEGIC (ACETYLSALICYLATE LYSINE) (75 MILLIGRAM) (ACETYLSALICYLATE LYSINE) [Concomitant]
  7. EUPANTOL (PANTOPRAZOLE) (20 MILLIGRAM) (PANTOPRAZOLE) [Concomitant]
  8. ZOLPIDEM (ZOLPIDEM) (ZOLPIDEM) [Concomitant]

REACTIONS (2)
  - Inappropriate antidiuretic hormone secretion [None]
  - Hyponatraemia [None]
